FAERS Safety Report 8606791-8 (Version None)
Quarter: 2012Q3

REPORT INFORMATION
  Report Type: 
  Country: None (occurrence: None)
  Receive Date: 20120820
  Receipt Date: 20120808
  Transmission Date: 20120928
  Serious: Yes (Life-Threatening)
  Sender: FDA-Public Use
  Company Number: FR-FRI-1000037894

PATIENT
  Sex: Male

DRUGS (4)
  1. ESCITALOPRAM [Suspect]
     Indication: MAJOR DEPRESSION
     Dates: start: 20111103
  2. ALCOHOL [Suspect]
  3. LUDIOMIL [Suspect]
     Indication: MAJOR DEPRESSION
     Dosage: 75 MG
     Route: 048
     Dates: start: 20111125
  4. VICTAN [Suspect]
     Indication: MAJOR DEPRESSION
     Route: 048
     Dates: start: 20111125

REACTIONS (1)
  - DISINHIBITION [None]
